FAERS Safety Report 11851021 (Version 1)
Quarter: 2015Q4

REPORT INFORMATION
  Report Type: Spontaneous
  Country: US (occurrence: US)
  Receive Date: 20151218
  Receipt Date: 20151218
  Transmission Date: 20160305
  Serious: No
  Sender: FDA-Public Use
  Company Number: US-JNJFOC-20150413044

PATIENT
  Sex: Male

DRUGS (4)
  1. PROPECIA [Concomitant]
     Active Substance: FINASTERIDE
     Route: 065
  2. ROGAINE [Suspect]
     Active Substance: MINOXIDIL
     Route: 065
  3. NIZORAL [Concomitant]
     Active Substance: KETOCONAZOLE
     Route: 065
  4. ROGAINE [Suspect]
     Active Substance: MINOXIDIL
     Indication: PRODUCT USED FOR UNKNOWN INDICATION
     Route: 065

REACTIONS (1)
  - Drug effect incomplete [Unknown]
